FAERS Safety Report 8512724-5 (Version None)
Quarter: 2012Q3

REPORT INFORMATION
  Report Type: 
  Country: None (occurrence: None)
  Receive Date: 20120716
  Receipt Date: 20120706
  Transmission Date: 20120928
  Serious: Yes (Hospitalization)
  Sender: FDA-Public Use
  Company Number: US-JNJFOC-20120701183

PATIENT
  Sex: Female
  Weight: 108 kg

DRUGS (3)
  1. ALL OTHER THERAPEUTIC PRODUCTS [Concomitant]
  2. REMICADE [Suspect]
     Dosage: DISCONTINUED DUE TO ^OTHER REASON.^
     Route: 042
     Dates: start: 20101101, end: 20120101
  3. REMICADE [Suspect]
     Indication: PSORIASIS
     Dosage: DISCONTINUED DUE TO ^OTHER REASON.^
     Route: 042
     Dates: start: 20090301, end: 20100501

REACTIONS (1)
  - PANCREATITIS [None]
